FAERS Safety Report 9483823 (Version 2)
Quarter: 2013Q3

REPORT INFORMATION
  Report Type: Spontaneous
  Country: CA (occurrence: CA)
  Receive Date: 20130828
  Receipt Date: 20130828
  Transmission Date: 20140515
  Serious: Yes (Other)
  Sender: FDA-Public Use
  Company Number: CA-AMGEN-KDL342260

PATIENT
  Age: 69 Year
  Sex: Male

DRUGS (5)
  1. ENBREL [Suspect]
     Indication: PSORIASIS
     Dosage: UNK UNK, QWK
     Route: 065
     Dates: start: 20090407
  2. AMLODIPINE BESILATE [Concomitant]
     Dosage: 10 MG, QD
  3. METOPROLOL [Concomitant]
     Dosage: 50 MG, QD
  4. METFORMIN [Concomitant]
     Dosage: 500 MG, QD
  5. CETIRIZINE [Concomitant]

REACTIONS (2)
  - Rash [Not Recovered/Not Resolved]
  - Pruritus generalised [Unknown]
